FAERS Safety Report 6549027-4 (Version None)
Quarter: 2010Q1

REPORT INFORMATION
  Report Type: 
  Country: None (occurrence: None)
  Receive Date: 20100125
  Receipt Date: 20100121
  Transmission Date: 20100710
  Serious: Yes (Death)
  Sender: FDA-Public Use
  Company Number: FR-JNJFOC-20100108316

PATIENT
  Age: 49 Year
  Sex: Male

DRUGS (2)
  1. DURAGESIC-100 [Suspect]
     Indication: CANCER PAIN
     Route: 062
  2. DURAGESIC-100 [Suspect]
     Route: 062

REACTIONS (3)
  - DRUG ADMINISTRATION ERROR [None]
  - MALIGNANT NEOPLASM PROGRESSION [None]
  - PRODUCT ADHESION ISSUE [None]
